FAERS Safety Report 9821677 (Version 1)
Quarter: 2014Q1

REPORT INFORMATION
  Report Type: Spontaneous
  Country: US (occurrence: US)
  Receive Date: 20140116
  Receipt Date: 20140116
  Transmission Date: 20141002
  Serious: No
  Sender: FDA-Public Use
  Company Number: US-PFIZER INC-2014010022

PATIENT
  Age: 57 Year
  Sex: Female
  Weight: 61.22 kg

DRUGS (4)
  1. ADVIL [Suspect]
     Indication: MIGRAINE
     Dosage: 3 TABLETS, AS NEEDED
     Route: 048
  2. ADVIL PM [Suspect]
     Indication: HEADACHE
     Dosage: UNK, AS NEEDED
  3. ADVIL PM [Suspect]
     Indication: PYREXIA
  4. ADVIL PM [Suspect]
     Indication: PAIN

REACTIONS (1)
  - Drug ineffective [Unknown]
